FAERS Safety Report 7738077-8 (Version None)
Quarter: 2011Q3

REPORT INFORMATION
  Report Type: 
  Country: None (occurrence: None)
  Receive Date: 20110908
  Receipt Date: 20110824
  Transmission Date: 20111222
  Serious: Yes (Hospitalization)
  Sender: FDA-Public Use
  Company Number: CH-BAYER-2011-076502

PATIENT
  Age: 83 Year
  Sex: Male

DRUGS (12)
  1. CORVATON [Concomitant]
  2. LODINE [Concomitant]
  3. ASPIRIN [Suspect]
     Dosage: 100 MG, QD
     Route: 048
  4. AMLODIPINE [Concomitant]
  5. SIMCORA [Concomitant]
  6. SYMFONA N [Suspect]
     Dosage: 1 DF, BID
     Route: 048
  7. GLIMEPIRIDE [Concomitant]
  8. METFORMIN HCL [Concomitant]
  9. DEANXIT [Concomitant]
  10. CITALOPRAM HYDROBROMIDE [Suspect]
     Dosage: 20 MG, BID
     Route: 048
  11. METOPROLOL TARTRATE [Concomitant]
  12. DUTASTERIDE/TAMSULOSIN HYDROCHLORIDE [Concomitant]

REACTIONS (2)
  - EPISTAXIS [None]
  - HYPERTENSION [None]
